FAERS Safety Report 19146351 (Version 1)
Quarter: 2021Q2

REPORT INFORMATION
  Report Type: Spontaneous
  Country: DK (occurrence: DK)
  Receive Date: 20210416
  Receipt Date: 20210416
  Transmission Date: 20210717
  Serious: Yes (Hospitalization)
  Sender: FDA-Public Use
  Company Number: DK-PFIZER INC-2021378845

PATIENT
  Age: 69 Year
  Sex: Female
  Weight: 70 kg

DRUGS (3)
  1. CLINDAMYCIN [CLINDAMYCIN PHOSPHATE] [Suspect]
     Active Substance: CLINDAMYCIN PHOSPHATE
     Dosage: 1800 MG, 1X/DAY
     Route: 042
     Dates: start: 20210223
  2. CLINDAMYCIN [CLINDAMYCIN PHOSPHATE] [Suspect]
     Active Substance: CLINDAMYCIN PHOSPHATE
     Indication: STAPHYLOCOCCAL BACTERAEMIA
     Dosage: 1800 MG, 1X/DAY
     Route: 042
     Dates: start: 20210213, end: 20210223
  3. DALACIN [Suspect]
     Active Substance: CLINDAMYCIN
     Indication: STAPHYLOCOCCAL BACTERAEMIA
     Dosage: 1800 MG, 1X/DAY
     Route: 042
     Dates: end: 20210303

REACTIONS (3)
  - Metabolic acidosis [Recovered/Resolved]
  - Off label use [Unknown]
  - Cognitive disorder [Recovered/Resolved]

NARRATIVE: CASE EVENT DATE: 20210303
